FAERS Safety Report 9964563 (Version 1)
Quarter: 2014Q1

REPORT INFORMATION
  Report Type: Spontaneous
  Country: US (occurrence: US)
  Receive Date: 20140305
  Receipt Date: 20140305
  Transmission Date: 20141002
  Serious: No
  Sender: FDA-Public Use
  Company Number: US-AMGEN-USASP2013085621

PATIENT
  Age: 64 Year
  Sex: Male
  Weight: 102.4 kg

DRUGS (10)
  1. ENBREL [Suspect]
     Indication: PRODUCT USED FOR UNKNOWN INDICATION
     Dosage: 50 MG/ML, QWK FOR 90 DAYS
     Route: 058
  2. MULTIVITAMINS, PLAIN [Concomitant]
     Dosage: UNK
  3. ASPIRIN LOW [Concomitant]
     Dosage: 81 MG, EC UNK
  4. METHOTREXATE [Concomitant]
     Dosage: UNK
  5. WELLBUTRIN [Concomitant]
     Dosage: 100 MG, UNK
  6. ATENOLOL [Concomitant]
     Dosage: 100 MG, UNK
  7. PROZAC [Concomitant]
     Dosage: 40 MG, UNK
  8. PRAVASTATIN [Concomitant]
     Dosage: 40 MG, UNK
  9. ALLOPURINOL [Concomitant]
     Dosage: 300 MG, UNK
  10. COLCHICINE [Concomitant]
     Dosage: 0.6 MG, UNK

REACTIONS (1)
  - Nasopharyngitis [Unknown]
